FAERS Safety Report 13635075 (Version 1)
Quarter: 2017Q2

REPORT INFORMATION
  Report Type: Spontaneous
  Country: US (occurrence: US)
  Receive Date: 20170531
  Receipt Date: 20170531
  Transmission Date: 20170830
  Serious: No
  Sender: FDA-Public Use
  Company Number: US-ASTELLAS-1681774

PATIENT
  Sex: Female
  Weight: 44.04 kg

DRUGS (3)
  1. TARCEVA [Suspect]
     Active Substance: ERLOTINIB HYDROCHLORIDE
     Indication: NON-SMALL CELL LUNG CANCER METASTATIC
  2. TARCEVA [Suspect]
     Active Substance: ERLOTINIB HYDROCHLORIDE
     Indication: LUNG NEOPLASM MALIGNANT
     Route: 065
     Dates: start: 20151009, end: 20151231
  3. TARCEVA [Suspect]
     Active Substance: ERLOTINIB HYDROCHLORIDE
     Indication: EGFR GENE MUTATION

REACTIONS (7)
  - Blister [Unknown]
  - Hair growth abnormal [Unknown]
  - Drug ineffective [Unknown]
  - Diarrhoea [Unknown]
  - Osteosclerosis [Unknown]
  - Rash [Unknown]
  - Gastroenteritis viral [Unknown]
